FAERS Safety Report 6315838-3 (Version None)
Quarter: 2009Q3

REPORT INFORMATION
  Report Type: 
  Country: None (occurrence: None)
  Receive Date: 20090820
  Receipt Date: 20070515
  Transmission Date: 20100115
  Serious: Yes (Hospitalization, Disabling, Other)
  Sender: FDA-Public Use
  Company Number: US-ASTRAZENECA-2006UW21750

PATIENT
  Age: 51 Year
  Sex: Female
  Weight: 101.6 kg

DRUGS (18)
  1. SEROQUEL [Suspect]
     Indication: BIPOLAR DISORDER
     Route: 048
     Dates: start: 20030101
  2. SEROQUEL [Suspect]
     Indication: DEPRESSION
     Route: 048
     Dates: start: 20030101
  3. SEROQUEL [Suspect]
     Indication: SLEEP DISORDER
     Route: 048
     Dates: start: 20030101
  4. SEROQUEL [Suspect]
     Dosage: 25 MG - 400 MG
     Route: 048
     Dates: start: 20030905
  5. SEROQUEL [Suspect]
     Dosage: 25 MG - 400 MG
     Route: 048
     Dates: start: 20030905
  6. SEROQUEL [Suspect]
     Dosage: 25 MG - 400 MG
     Route: 048
     Dates: start: 20030905
  7. TRILAFON [Concomitant]
  8. ZYRTEC [Concomitant]
     Dates: start: 20050511, end: 20060721
  9. LEVAQUIN [Concomitant]
     Dosage: 500 MG - 750 MG
     Dates: start: 20050511
  10. VANCOMYCIN [Concomitant]
     Indication: MENINGITIS
     Dosage: 500 MG - 5 GM
     Dates: start: 20051219
  11. KLONOPIN [Concomitant]
     Dosage: 0.5 MG - 2 MG
     Dates: start: 20041228
  12. LEXAPRO [Concomitant]
     Dosage: 10 MG - 40 MG
     Dates: start: 20030905
  13. DESERYL [Concomitant]
     Dates: start: 20050426
  14. LORTAB [Concomitant]
     Indication: PAIN
     Dates: start: 20050426
  15. PROTORIX [Concomitant]
     Dates: start: 20041228
  16. TYLENOL (CAPLET) [Concomitant]
     Indication: HEADACHE
     Dosage: 325 MG, 1-2 EVERY 3 - 4 HOURS
     Dates: start: 20060601
  17. TYLENOL (CAPLET) [Concomitant]
     Indication: PAIN
     Dosage: 325 MG, 1-2 EVERY 3 - 4 HOURS
     Dates: start: 20060601
  18. TRAZODONE HCL [Concomitant]
     Dosage: 100MG - 200 MG
     Dates: start: 20030905

REACTIONS (11)
  - DIABETES MELLITUS [None]
  - HEPATITIS [None]
  - HEPATITIS C [None]
  - INFECTION [None]
  - LEUKAEMIA [None]
  - NEUROPATHY PERIPHERAL [None]
  - PSOAS ABSCESS [None]
  - SUBCUTANEOUS ABSCESS [None]
  - SURGERY [None]
  - TYPE 1 DIABETES MELLITUS [None]
  - TYPE 2 DIABETES MELLITUS [None]
